FAERS Safety Report 6138386-2 (Version None)
Quarter: 2009Q1

REPORT INFORMATION
  Report Type: 
  Country: None (occurrence: None)
  Receive Date: 20090331
  Receipt Date: 20090330
  Transmission Date: 20090719
  Serious: Yes (Life-Threatening, Hospitalization, Other)
  Sender: FDA-Public Use
  Company Number: BE-BAYER-200917432GPV

PATIENT
  Age: 78 Year
  Sex: Male

DRUGS (3)
  1. SORAFENIB [Suspect]
     Indication: HEAD AND NECK CANCER
     Dosage: TOTAL DAILY DOSE: 800 MG
     Route: 048
     Dates: start: 20090206, end: 20090312
  2. NEUROFEN [Concomitant]
     Indication: TUMOUR PAIN
     Route: 048
     Dates: start: 20080101
  3. L-CARNITINE [Concomitant]
     Indication: PARAESTHESIA
     Route: 048
     Dates: start: 20090209

REACTIONS (2)
  - DYSPHAGIA [None]
  - HEAD AND NECK CANCER [None]
